FAERS Safety Report 22125936 (Version 1)
Quarter: 2023Q1

REPORT INFORMATION
  Report Type: Spontaneous
  Country: US (occurrence: US)
  Receive Date: 20230322
  Receipt Date: 20230322
  Transmission Date: 20230417
  Serious: Yes (Hospitalization, Other)
  Sender: FDA-Public Use
  Company Number: US-BAYER-2023A036910

PATIENT
  Age: 28 Year
  Sex: Female

DRUGS (2)
  1. SKYLA [Suspect]
     Active Substance: LEVONORGESTREL
     Indication: Contraception
     Dosage: 14?G/DAY
     Route: 015
     Dates: start: 20200618
  2. SPIRONOLACTONE [Concomitant]
     Active Substance: SPIRONOLACTONE
     Indication: Blood potassium

REACTIONS (10)
  - Abdominal pain [Not Recovered/Not Resolved]
  - Vaginal haemorrhage [Not Recovered/Not Resolved]
  - Device difficult to use [None]
  - Post procedural haemorrhage [None]
  - Procedural pain [None]
  - Coital bleeding [None]
  - Dyspareunia [None]
  - Feeling abnormal [None]
  - Device dislocation [Not Recovered/Not Resolved]
  - Abdominal distension [None]

NARRATIVE: CASE EVENT DATE: 20200618
